FAERS Safety Report 9735443 (Version 1)
Quarter: 2013Q4

REPORT INFORMATION
  Report Type: Spontaneous
  Country: US (occurrence: US)
  Receive Date: 20131206
  Receipt Date: 20131206
  Transmission Date: 20140711
  Serious: No
  Sender: FDA-Public Use
  Company Number: US-GILEAD-2009-0022815

PATIENT
  Sex: Male

DRUGS (5)
  1. LETAIRIS [Suspect]
     Indication: PULMONARY ARTERIAL HYPERTENSION
     Route: 048
     Dates: start: 20090514
  2. ATENOLOL [Concomitant]
  3. BUSPAR [Concomitant]
  4. PRILOSEC [Concomitant]
  5. ROZEREM [Concomitant]

REACTIONS (2)
  - Weight increased [Unknown]
  - Constipation [Unknown]
